FAERS Safety Report 24845857 (Version 1)
Quarter: 2025Q1

REPORT INFORMATION
  Report Type: Spontaneous
  Country: US (occurrence: US)
  Receive Date: 20250115
  Receipt Date: 20250115
  Transmission Date: 20250409
  Serious: Yes (Hospitalization)
  Sender: ELI LILLY AND COMPANY
  Company Number: US-ELI_LILLY_AND_COMPANY-US202501005459

PATIENT
  Age: 67 Year

DRUGS (3)
  1. FORTEO [Suspect]
     Active Substance: TERIPARATIDE
     Indication: Osteoporosis
     Route: 058
     Dates: start: 202410
  2. FORTEO [Suspect]
     Active Substance: TERIPARATIDE
     Route: 058
  3. FORTEO [Suspect]
     Active Substance: TERIPARATIDE
     Route: 058
     Dates: start: 20250106

REACTIONS (4)
  - Diverticulitis [Unknown]
  - Infection parasitic [Unknown]
  - Nasopharyngitis [Unknown]
  - Influenza [Unknown]
